FAERS Safety Report 4763149-X (Version None)
Quarter: 2005Q3

REPORT INFORMATION
  Report Type: 
  Country: None (occurrence: None)
  Receive Date: 20050831
  Receipt Date: 20050816
  Transmission Date: 20060218
  Serious: Yes (Hospitalization)
  Sender: FDA-Public Use
  Company Number: THYM-10703

PATIENT
  Age: 38 Year
  Sex: Male
  Weight: 73.9 kg

DRUGS (4)
  1. THYMOGLOBULIN [Suspect]
     Indication: RENAL TRANSPLANT
     Dosage: 90 MG QD IV
     Route: 042
     Dates: start: 20020117, end: 20020420
  2. PROGRAF [Concomitant]
  3. RAPAMUNE [Concomitant]
  4. PREDNISONE [Concomitant]

REACTIONS (2)
  - DIABETIC KETOACIDOSIS [None]
  - INFECTION [None]
